FAERS Safety Report 15002996 (Version 1)
Quarter: 2018Q2

REPORT INFORMATION
  Report Type: Report from Study
  Country: US (occurrence: US)
  Receive Date: 20180612
  Receipt Date: 20180612
  Transmission Date: 20180711
  Serious: Yes (Death, Life-Threatening, Hospitalization, Other)
  Sender: FDA-Public Use
  Company Number: US-ACTELION-A-NJ2018-165203

PATIENT
  Age: 68 Year
  Sex: Female
  Weight: 48.73 kg

DRUGS (6)
  1. VELETRI [Suspect]
     Active Substance: EPOPROSTENOL
     Indication: PULMONARY HYPERTENSION
     Dosage: 44 NG/KG, PER MIN
     Route: 042
     Dates: end: 20180603
  2. OPSUMIT [Suspect]
     Active Substance: MACITENTAN
     Indication: PULMONARY HYPERTENSION
     Dosage: 10 MG, QD
     Route: 048
     Dates: start: 20171016, end: 20180603
  3. REVATIO [Suspect]
     Active Substance: SILDENAFIL CITRATE
     Indication: PULMONARY HYPERTENSION
     Dosage: 20 MG, TID
     Route: 065
     Dates: start: 201501
  4. OXYGEN. [Concomitant]
     Active Substance: OXYGEN
     Dosage: 4 L/MIN, UNK
  5. OXYGEN. [Concomitant]
     Active Substance: OXYGEN
     Dosage: 6 L/MIN, UNK
     Dates: start: 2012
  6. VELETRI [Suspect]
     Active Substance: EPOPROSTENOL
     Dosage: 42 NG/KG, PER MIN
     Route: 042
     Dates: start: 201608

REACTIONS (25)
  - Dyspnoea exertional [Unknown]
  - Dizziness [Unknown]
  - Liver function test increased [Fatal]
  - Infusion site papule [Unknown]
  - Respiratory failure [Fatal]
  - Pulmonary arterial hypertension [Fatal]
  - Alanine aminotransferase increased [Fatal]
  - Palpitations [Unknown]
  - Vomiting [Unknown]
  - Nasopharyngitis [Unknown]
  - Condition aggravated [Fatal]
  - Confusional state [Unknown]
  - Headache [Recovered/Resolved]
  - Visual impairment [Unknown]
  - Device dislocation [Unknown]
  - Sepsis [Unknown]
  - Pain in jaw [Unknown]
  - Aspartate aminotransferase increased [Fatal]
  - Hypoxia [Not Recovered/Not Resolved]
  - Encephalopathy [Not Recovered/Not Resolved]
  - Mental status changes [Unknown]
  - Vision blurred [Recovered/Resolved]
  - Chest pain [Unknown]
  - Flushing [Unknown]
  - Infusion site erythema [Unknown]

NARRATIVE: CASE EVENT DATE: 20180427
